FAERS Safety Report 8154245-8 (Version None)
Quarter: 2012Q1

REPORT INFORMATION
  Report Type: 
  Country: None (occurrence: None)
  Receive Date: 20120215
  Receipt Date: 20120206
  Transmission Date: 20120608
  Serious: Yes (Other)
  Sender: FDA-Public Use
  Company Number: AUR-APL-2012-00835

PATIENT
  Age: 63 Year
  Sex: Female

DRUGS (2)
  1. GABAPENTIN [Suspect]
     Indication: RADICULITIS
  2. DIBOTERMIN ALFA (DIBOTERMIN ALFA) [Suspect]
     Indication: PRODUCT USED FOR UNKNOWN INDICATION
     Dosage: (6 MG)

REACTIONS (3)
  - POST PROCEDURAL COMPLICATION [None]
  - OSTEOLYSIS [None]
  - RADICULITIS [None]
